FAERS Safety Report 17555073 (Version 1)
Quarter: 2020Q1

REPORT INFORMATION
  Report Type: Spontaneous
  Country: US (occurrence: US)
  Receive Date: 20200317
  Receipt Date: 20200317
  Transmission Date: 20200409
  Serious: Yes (Other)
  Sender: FDA-Public Use
  Company Number: None

PATIENT
  Age: 43 Year
  Sex: Male
  Weight: 94.5 kg

DRUGS (5)
  1. BIKTARVY [Concomitant]
     Active Substance: BICTEGRAVIR SODIUM\EMTRICITABINE\TENOFOVIR ALAFENAMIDE FUMARATE
  2. CLARITIN [Concomitant]
     Active Substance: LORATADINE
  3. SYNTHROID [Suspect]
     Active Substance: LEVOTHYROXINE SODIUM
     Indication: HYPOTHYROIDISM
     Dosage: ?          QUANTITY:30 TABLET(S);?
     Route: 048
     Dates: start: 20120301, end: 20200226
  4. IMODIUM AD [Concomitant]
     Active Substance: LOPERAMIDE HYDROCHLORIDE
  5. WELLBUTRIN [Concomitant]
     Active Substance: BUPROPION HYDROCHLORIDE

REACTIONS (9)
  - Abdominal distension [None]
  - Loss of libido [None]
  - Depression [None]
  - Vomiting [None]
  - Thyroid hormones increased [None]
  - Purpura [None]
  - Haemorrhoids thrombosed [None]
  - Dyspepsia [None]
  - Suspected product quality issue [None]

NARRATIVE: CASE EVENT DATE: 20190815
